FAERS Safety Report 9688270 (Version 3)
Quarter: 2013Q4

REPORT INFORMATION
  Report Type: Spontaneous
  Country: AR (occurrence: AR)
  Receive Date: 20131114
  Receipt Date: 20131129
  Transmission Date: 20140711
  Serious: Yes (Other)
  Sender: FDA-Public Use
  Company Number: AR-AMGEN-ARGSP2013079085

PATIENT
  Sex: Female

DRUGS (6)
  1. NPLATE [Suspect]
     Indication: IMMUNE THROMBOCYTOPENIC PURPURA
     Dosage: 250 MUG, UNK
     Route: 065
     Dates: start: 20120813
  2. DANAZOL [Concomitant]
  3. GAMMA GLOBULIN [Concomitant]
  4. VINCRISTINE [Concomitant]
  5. RITUXIMAB [Concomitant]
  6. CORTICOSTEROIDS [Concomitant]

REACTIONS (1)
  - Therapeutic response decreased [Unknown]
